FAERS Safety Report 11253541 (Version 3)
Quarter: 2018Q4

REPORT INFORMATION
  Report Type: Report from Study
  Country: CA (occurrence: CA)
  Receive Date: 20150709
  Receipt Date: 20181208
  Transmission Date: 20190204
  Serious: Yes (Other)
  Sender: FDA-Public Use
  Company Number: CA-ROCHE-1559485

PATIENT
  Age: 66 Year
  Sex: Female

DRUGS (19)
  1. HYDROVAL [Concomitant]
     Active Substance: HYDROCORTISONE VALERATE
  2. NASONEX [Concomitant]
     Active Substance: MOMETASONE FUROATE
  3. PREDNISONE. [Concomitant]
     Active Substance: PREDNISONE
  4. VENTOLIN [Concomitant]
     Active Substance: ALBUTEROL SULFATE
  5. ALPRAZOLAM. [Concomitant]
     Active Substance: ALPRAZOLAM
  6. ACETAMINOPHEN. [Concomitant]
     Active Substance: ACETAMINOPHEN
  7. CALCITE D [Concomitant]
     Active Substance: CALCIUM CARBONATE
  8. DEXILANT [Concomitant]
     Active Substance: DEXLANSOPRAZOLE
  9. NAPROXEN. [Concomitant]
     Active Substance: NAPROXEN
     Route: 065
  10. NASONEX [Concomitant]
     Active Substance: MOMETASONE FUROATE
  11. LORATADINE. [Concomitant]
     Active Substance: LORATADINE
  12. RITUXAN [Suspect]
     Active Substance: RITUXIMAB
     Indication: RHEUMATOID ARTHRITIS
     Route: 042
     Dates: start: 2013, end: 20151117
  13. VENTOLIN [Concomitant]
     Active Substance: ALBUTEROL SULFATE
  14. DEXILANT [Concomitant]
     Active Substance: DEXLANSOPRAZOLE
  15. ESTROGEL [Concomitant]
     Active Substance: ESTRADIOL
  16. FLOVENT [Concomitant]
     Active Substance: FLUTICASONE PROPIONATE
  17. VAGIFEM [Concomitant]
     Active Substance: ESTRADIOL
  18. TRIAMTERENE AND HYDROCHLOROTHIAZIDE [Concomitant]
     Active Substance: HYDROCHLOROTHIAZIDE\TRIAMTERENE
  19. METHOTREXATE. [Concomitant]
     Active Substance: METHOTREXATE

REACTIONS (6)
  - Cholelithiasis [Unknown]
  - Drug ineffective [Unknown]
  - White blood cell count decreased [Not Recovered/Not Resolved]
  - Liver disorder [Unknown]
  - Sinusitis [Recovered/Resolved]
  - Bronchitis [Unknown]

NARRATIVE: CASE EVENT DATE: 201412
